FAERS Safety Report 5010095-2 (Version None)
Quarter: 2006Q2

REPORT INFORMATION
  Report Type: 
  Country: None (occurrence: None)
  Receive Date: 20060523
  Receipt Date: 20060515
  Transmission Date: 20061013
  Serious: Yes (Other)
  Sender: FDA-Public Use
  Company Number: FR-2006-008068

PATIENT
  Age: 48 Year
  Sex: Female
  Weight: 90 kg

DRUGS (1)
  1. MIRENA [Suspect]
     Indication: CONTRACEPTION
     Dosage: 20 UG, CONT, INTRA-UTERINE
     Route: 015
     Dates: start: 20040101

REACTIONS (5)
  - BENIGN INTRACRANIAL HYPERTENSION [None]
  - HEADACHE [None]
  - PAPILLOEDEMA [None]
  - VISUAL DISTURBANCE [None]
  - WEIGHT DECREASED [None]
